FAERS Safety Report 5936633-0 (Version None)
Quarter: 2008Q4

REPORT INFORMATION
  Report Type: 
  Country: None (occurrence: None)
  Receive Date: 20081030
  Receipt Date: 20080220
  Transmission Date: 20090506
  Serious: Yes (Other)
  Sender: FDA-Public Use
  Company Number: DE-ALLERGAN-0801945US

PATIENT
  Sex: Female

DRUGS (1)
  1. OPTIVE [Suspect]
     Indication: DRUG USE FOR UNKNOWN INDICATION
     Route: 047

REACTIONS (2)
  - EYE PAIN [None]
  - PUNCTATE KERATITIS [None]
